FAERS Safety Report 9350303 (Version 1)
Quarter: 2013Q2

REPORT INFORMATION
  Report Type: Spontaneous
  Country: FR (occurrence: FR)
  Receive Date: 20130617
  Receipt Date: 20130617
  Transmission Date: 20140414
  Serious: Yes (Hospitalization)
  Sender: FDA-Public Use
  Company Number: FR-ROCHE-1237130

PATIENT
  Age: 66 Year
  Sex: Male

DRUGS (15)
  1. AVASTIN [Suspect]
     Indication: PRODUCT USED FOR UNKNOWN INDICATION
     Route: 041
     Dates: start: 20120725, end: 20130305
  2. 5-FLUOROURACIL [Suspect]
     Indication: PRODUCT USED FOR UNKNOWN INDICATION
     Route: 065
     Dates: start: 20120725
  3. 5-FLUOROURACIL [Suspect]
     Route: 065
     Dates: start: 20120808
  4. 5-FLUOROURACIL [Suspect]
     Route: 065
     Dates: start: 20120830
  5. 5-FLUOROURACIL [Suspect]
     Dosage: AND ALSO ON 04/OCT/2012 AND 18/OCT/2012
     Route: 065
     Dates: start: 20120920
  6. EMEND [Suspect]
     Indication: PRODUCT USED FOR UNKNOWN INDICATION
     Route: 048
     Dates: start: 20120725, end: 20130307
  7. IRINOTECAN [Suspect]
     Indication: PRODUCT USED FOR UNKNOWN INDICATION
     Route: 041
     Dates: start: 20120725, end: 20130305
  8. TEMERIT [Concomitant]
     Route: 065
  9. ZOLPIDEM [Concomitant]
     Dosage: 1-1.5 TABLETS /DAY
     Route: 065
  10. FOLINIC ACID [Concomitant]
     Route: 065
     Dates: start: 20120808, end: 20121004
  11. ELVORINE [Concomitant]
  12. CALCIUM LEVOFOLINATE [Concomitant]
  13. SOLU-MEDROL [Concomitant]
     Route: 065
  14. TRAMADOL [Concomitant]
  15. ZOPHREN [Concomitant]

REACTIONS (1)
  - Pancreatitis acute [Not Recovered/Not Resolved]
